FAERS Safety Report 11150638 (Version 3)
Quarter: 2015Q3

REPORT INFORMATION
  Report Type: Spontaneous
  Country: JP (occurrence: JP)
  Receive Date: 20150601
  Receipt Date: 20150908
  Transmission Date: 20151125
  Serious: Yes (Death, Hospitalization, Other)
  Sender: FDA-Public Use
  Company Number: JP-009507513-1505JPN015245

PATIENT
  Age: 75 Year
  Sex: Female
  Weight: 53 kg

DRUGS (9)
  1. CEFTAZIDIME. [Concomitant]
     Active Substance: CEFTAZIDIME
     Indication: PNEUMONIA PSEUDOMONAL
     Dosage: 2 G, BID
     Route: 041
     Dates: start: 20150205, end: 20150225
  2. CEFOTAXIME [Concomitant]
     Active Substance: CEFOTAXIME SODIUM
     Indication: INFECTIVE SPONDYLITIS
     Dosage: 2 G, QID
     Route: 041
     Dates: start: 20150204, end: 20150226
  3. CUBICIN [Suspect]
     Active Substance: DAPTOMYCIN
     Indication: INFECTIVE SPONDYLITIS
     Dosage: 350 MG, QD
     Route: 041
     Dates: start: 20150217, end: 20150226
  4. CUBICIN [Suspect]
     Active Substance: DAPTOMYCIN
     Indication: STAPHYLOCOCCAL INFECTION
     Dosage: 350 MG, QOD
     Route: 041
     Dates: start: 20150305, end: 20150329
  5. VANCOMYCIN [Concomitant]
     Active Substance: VANCOMYCIN
     Indication: INFECTIVE SPONDYLITIS
     Dosage: DAILY DOSAGE UNKNOWN
     Route: 065
     Dates: start: 201502, end: 201502
  6. ZYVOX [Concomitant]
     Active Substance: LINEZOLID
     Indication: INFECTIVE SPONDYLITIS
     Dosage: 600 MG, BID
     Route: 048
     Dates: start: 20150210, end: 20150216
  7. CUBICIN [Suspect]
     Active Substance: DAPTOMYCIN
     Dosage: 350 MG, QD
     Route: 041
     Dates: start: 20150330, end: 20150517
  8. VANCOMYCIN [Concomitant]
     Active Substance: VANCOMYCIN
     Indication: STAPHYLOCOCCAL INFECTION
  9. ZYVOX [Concomitant]
     Active Substance: LINEZOLID
     Indication: STAPHYLOCOCCAL INFECTION

REACTIONS (8)
  - Multi-organ failure [Fatal]
  - Prerenal failure [Fatal]
  - Agranulocytosis [Recovering/Resolving]
  - Urinary tract infection [Unknown]
  - Platelet count decreased [Not Recovered/Not Resolved]
  - Sepsis [Fatal]
  - Haemoglobin decreased [Unknown]
  - Fungal infection [Unknown]

NARRATIVE: CASE EVENT DATE: 2015
